FAERS Safety Report 4952694-X (Version None)
Quarter: 2006Q1

REPORT INFORMATION
  Report Type: 
  Country: None (occurrence: None)
  Receive Date: 20060321
  Receipt Date: 20060306
  Transmission Date: 20060701
  Serious: Yes (Death, Other)
  Sender: FDA-Public Use
  Company Number: 2006-DE-01236GD

PATIENT
  Sex: 0

DRUGS (4)
  1. MORPHINE [Suspect]
     Indication: BREAKTHROUGH PAIN
     Dosage: SEE IMAGE
     Route: 037
  2. MORPHINE [Suspect]
     Indication: CANCER PAIN
     Dosage: SEE IMAGE
     Route: 037
  3. LEVOBUPIVACAINE (LEVOBUPIVACAINE) [Suspect]
     Indication: BREAKTHROUGH PAIN
     Dosage: IT
     Route: 037
  4. LEVOBUPIVACAINE (LEVOBUPIVACAINE) [Suspect]
     Indication: CANCER PAIN
     Dosage: IT
     Route: 037

REACTIONS (4)
  - ADVERSE EVENT [None]
  - DRUG INEFFECTIVE [None]
  - INADEQUATE ANALGESIA [None]
  - SOMNOLENCE [None]
